FAERS Safety Report 19476557 (Version 2)
Quarter: 2021Q3

REPORT INFORMATION
  Report Type: Spontaneous
  Country: SE (occurrence: SE)
  Receive Date: 20210630
  Receipt Date: 20210709
  Transmission Date: 20211014
  Serious: Yes (Other)
  Sender: FDA-Public Use
  Company Number: SE-ACCORD-229810

PATIENT
  Sex: Female
  Weight: 16.7 kg

DRUGS (5)
  1. TACROLIMUS. [Suspect]
     Active Substance: TACROLIMUS
     Indication: IMMUNOSUPPRESSANT DRUG THERAPY
     Route: 048
     Dates: start: 201906
  2. RITUXIMAB. [Suspect]
     Active Substance: RITUXIMAB
     Indication: POST TRANSPLANT LYMPHOPROLIFERATIVE DISORDER
     Dosage: WEEKLY DOSES OF RITUXIMAB DURING FOUR CONSECUTIVE WEEKS
     Dates: start: 2020
  3. TRAMETINIB [Suspect]
     Active Substance: TRAMETINIB
     Indication: HEPATIC ANGIOSARCOMA
     Route: 048
  4. RITUXIMAB. [Suspect]
     Active Substance: RITUXIMAB
     Indication: POST TRANSPLANT LYMPHOPROLIFERATIVE DISORDER
     Dosage: WEEKLY DOSES OF RITUXIMAB DURING FOUR CONSECUTIVE WEEKS
     Route: 042
     Dates: start: 2020
  5. PREDNISOLONE. [Suspect]
     Active Substance: PREDNISOLONE
     Indication: IMMUNOSUPPRESSANT DRUG THERAPY
     Route: 048
     Dates: start: 201906

REACTIONS (6)
  - Adenovirus infection [Unknown]
  - Post transplant lymphoproliferative disorder [Unknown]
  - Rhinovirus infection [Unknown]
  - Decreased immune responsiveness [Unknown]
  - COVID-19 [Recovered/Resolved]
  - Vaccine virus shedding [Unknown]

NARRATIVE: CASE EVENT DATE: 2020
